FAERS Safety Report 19299667 (Version 3)
Quarter: 2021Q3

REPORT INFORMATION
  Report Type: Spontaneous
  Country: US (occurrence: US)
  Receive Date: 20210524
  Receipt Date: 20210920
  Transmission Date: 20211014
  Serious: Yes (Hospitalization, Other)
  Sender: FDA-Public Use
  Company Number: US-BAYER-2021-145107

PATIENT
  Age: 15 Year
  Sex: Male

DRUGS (8)
  1. HEMLIBRA [Concomitant]
     Active Substance: EMICIZUMAB-KXWH
     Dosage: UNK; STARTED LOADING DOSES
     Dates: start: 20210721
  2. KOGENATE FS [Suspect]
     Active Substance: ANTIHEMOPHILIC FACTOR, HUMAN RECOMBINANT
     Indication: FACTOR VIII DEFICIENCY
     Dosage: TWICE DAILY INFUSIONS WHILE IN THE HOSPITAL
     Dates: start: 202105
  3. KOGENATE FS [Suspect]
     Active Substance: ANTIHEMOPHILIC FACTOR, HUMAN RECOMBINANT
     Indication: FACTOR VIII DEFICIENCY
     Dosage: 2900 IU, FOR THE ILIOPSOAS HEMATOMA TREATMENT
     Dates: start: 20210522
  4. KOGENATE FS [Suspect]
     Active Substance: ANTIHEMOPHILIC FACTOR, HUMAN RECOMBINANT
     Indication: FACTOR VIII DEFICIENCY
     Dosage: 3020 IU, PRN, DAILY
     Route: 042
     Dates: start: 20210713, end: 202107
  5. KOGENATE FS [Suspect]
     Active Substance: ANTIHEMOPHILIC FACTOR, HUMAN RECOMBINANT
     Indication: FACTOR VIII DEFICIENCY
     Dosage: 2945 U
     Route: 042
     Dates: start: 202010
  6. KOGENATE FS [Suspect]
     Active Substance: ANTIHEMOPHILIC FACTOR, HUMAN RECOMBINANT
     Indication: FACTOR VIII DEFICIENCY
     Dosage: UNK; AT THE TIME WAS FINISHING THE LAST DOSES FOR A LEFT ILIOPSOAS BLEED
     Route: 042
     Dates: start: 20210721
  7. KOGENATE FS [Suspect]
     Active Substance: ANTIHEMOPHILIC FACTOR, HUMAN RECOMBINANT
     Indication: FACTOR VIII DEFICIENCY
     Dosage: 2900 IU, QOD, FOR THE ILIOPSOAS HEMATOMA TREATMENT
     Dates: start: 202105
  8. KOGENATE FS [Suspect]
     Active Substance: ANTIHEMOPHILIC FACTOR, HUMAN RECOMBINANT
     Indication: FACTOR VIII DEFICIENCY
     Dosage: UNK, PRN, DAILY, AS DIRECTED

REACTIONS (3)
  - Pain [None]
  - Central venous catheterisation [None]
  - Muscle haemorrhage [Recovering/Resolving]

NARRATIVE: CASE EVENT DATE: 2021
